FAERS Safety Report 20353989 (Version 8)
Quarter: 2024Q1

REPORT INFORMATION
  Report Type: Report from Study
  Country: US (occurrence: US)
  Receive Date: 20220120
  Receipt Date: 20240315
  Transmission Date: 20240410
  Serious: Yes (Other)
  Sender: FDA-Public Use
  Company Number: US-NOVARTISTESTPH-NVSC2022US011294

PATIENT
  Sex: Female

DRUGS (1)
  1. COSENTYX [Suspect]
     Active Substance: SECUKINUMAB
     Indication: Psoriasis
     Dosage: 300 MG, QW (WEEKLY LOAD WEEK 0, 1, 2, 3, 4 THEN EVERY 4 WEEKS THEREAFTER)
     Route: 058

REACTIONS (8)
  - Psoriatic arthropathy [Unknown]
  - Joint swelling [Unknown]
  - Insomnia [Unknown]
  - Pain [Unknown]
  - Peripheral swelling [Unknown]
  - Arthralgia [Unknown]
  - Laryngitis [Unknown]
  - Swelling [Unknown]
